FAERS Safety Report 21131573 (Version 3)
Quarter: 2022Q4

REPORT INFORMATION
  Report Type: Spontaneous
  Country: US (occurrence: US)
  Receive Date: 20220726
  Receipt Date: 20221003
  Transmission Date: 20230113
  Serious: Yes (Life-Threatening, Other)
  Sender: FDA-Public Use
  Company Number: US-GLENMARK PHARMACEUTICALS-2022GMK073870

PATIENT
  Age: 41 Year
  Sex: Male

DRUGS (1)
  1. FLUCONAZOLE [Suspect]
     Active Substance: FLUCONAZOLE
     Indication: Disseminated coccidioidomycosis
     Dosage: 400 MILLIGRAM, QD
     Route: 065

REACTIONS (4)
  - Shock [Recovering/Resolving]
  - Cardiac tamponade [Recovering/Resolving]
  - Respiratory distress [Recovering/Resolving]
  - Respiratory arrest [Recovering/Resolving]
